FAERS Safety Report 8432150-7 (Version None)
Quarter: 2012Q2

REPORT INFORMATION
  Report Type: 
  Country: None (occurrence: None)
  Receive Date: 20120613
  Receipt Date: 20120604
  Transmission Date: 20120825
  Serious: Yes (Other)
  Sender: FDA-Public Use
  Company Number: PHHY2012US049763

PATIENT
  Age: 2 Year
  Sex: Male

DRUGS (6)
  1. ZOLEDRONIC ACID [Suspect]
     Indication: NEUROBLASTOMA
     Dosage: 2 MG/M2, EVERY 28 DAYS
  2. ZOLEDRONIC ACID [Suspect]
     Dosage: 4 MG/M2, EVERY 28 DAYS
  3. VITAMIN D [Concomitant]
     Dosage: UNK
     Route: 048
  4. ZOLEDRONIC ACID [Suspect]
     Dosage: 3 MG/M2, EVERY 28 DAYS
  5. CYCLOPHOSPHAMIDE [Suspect]
     Dosage: 25 MG/M2, DAILY
     Route: 048
  6. CALCIUM [Concomitant]
     Dosage: UNK
     Route: 048

REACTIONS (4)
  - FEMUR FRACTURE [None]
  - OSTEOSCLEROSIS [None]
  - RIB FRACTURE [None]
  - THERAPEUTIC RESPONSE DECREASED [None]
